FAERS Safety Report 6268294-8 (Version None)
Quarter: 2009Q3

REPORT INFORMATION
  Report Type: 
  Country: None (occurrence: None)
  Receive Date: 20090715
  Receipt Date: 20090707
  Transmission Date: 20100115
  Serious: Yes (Death, Hospitalization)
  Sender: FDA-Public Use
  Company Number: DE-ELI_LILLY_AND_COMPANY-DE200907001348

PATIENT
  Sex: Female

DRUGS (2)
  1. FORTEO [Suspect]
     Indication: OSTEOPOROSIS
     Dosage: 20 UG, DAILY (1/D)
     Route: 058
     Dates: start: 20080222
  2. ANALGESICS [Concomitant]
     Indication: PAIN
     Dosage: UNK, UNKNOWN
     Route: 065

REACTIONS (3)
  - BLOOD TEST ABNORMAL [None]
  - IMMUNE SYSTEM DISORDER [None]
  - PNEUMONIA [None]
